FAERS Safety Report 6330820-8 (Version None)
Quarter: 2009Q3

REPORT INFORMATION
  Report Type: 
  Country: None (occurrence: None)
  Receive Date: 20090827
  Receipt Date: 20090820
  Transmission Date: 20100115
  Serious: Yes (Other)
  Sender: FDA-Public Use
  Company Number: PHHY2009CA34290

PATIENT
  Sex: Female

DRUGS (3)
  1. DIOVAN [Suspect]
     Dosage: 160 MG, 1 TABLET/DAY
     Route: 048
     Dates: start: 20070101
  2. RASILEZ [Suspect]
     Dosage: 150 MG
  3. RASILEZ [Suspect]
     Dosage: 300 MG
     Dates: start: 20090710

REACTIONS (3)
  - BLOOD PRESSURE INCREASED [None]
  - BLOOD PRESSURE SYSTOLIC INCREASED [None]
  - DRUG INEFFECTIVE [None]
